FAERS Safety Report 5839525-0 (Version None)
Quarter: 2008Q3

REPORT INFORMATION
  Report Type: 
  Country: None (occurrence: None)
  Receive Date: 20080807
  Receipt Date: 20080726
  Transmission Date: 20090109
  Serious: Yes (Other)
  Sender: FDA-Public Use
  Company Number: CHPA2008US12929

PATIENT
  Age: 56 Year
  Sex: Male

DRUGS (1)
  1. MAALOX ANTACID/ANTIGAS MAX LIQ (NCH) (MAGNESIUM HYDROXIDE, ALUMINIUM H [Suspect]
     Indication: DYSPEPSIA
     Dosage: 2 TSP, TID, ORAL
     Route: 048
     Dates: start: 20080720, end: 20080725

REACTIONS (1)
  - CHOLELITHIASIS [None]
